FAERS Safety Report 11661630 (Version 13)
Quarter: 2017Q2

REPORT INFORMATION
  Report Type: Spontaneous
  Country: US (occurrence: US)
  Receive Date: 20151026
  Receipt Date: 20170621
  Transmission Date: 20170829
  Serious: Yes (Hospitalization, Other)
  Sender: FDA-Public Use
  Company Number: US-PFIZER INC-2015185248

PATIENT
  Age: 30 Year
  Sex: Male
  Weight: 89.8 kg

DRUGS (5)
  1. SUTENT [Suspect]
     Active Substance: SUNITINIB MALATE
     Dosage: 37.5 MG, DAILY
     Route: 048
  2. SUTENT [Suspect]
     Active Substance: SUNITINIB MALATE
     Dosage: 75 MG, DAILY (2 CAPSULES DAILY FOR 2 DAYS)
     Route: 048
  3. SUTENT [Suspect]
     Active Substance: SUNITINIB MALATE
     Dosage: 37.5 MG, DAILY
     Route: 048
  4. SUTENT [Suspect]
     Active Substance: SUNITINIB MALATE
     Indication: PANCREATIC CARCINOMA
     Dosage: 37.5 MG, DAILY
     Route: 048
     Dates: start: 20150521, end: 20150528
  5. SUTENT [Suspect]
     Active Substance: SUNITINIB MALATE
     Dosage: 37.5 MG, DAILY
     Route: 048
     Dates: start: 2015, end: 20151103

REACTIONS (22)
  - White blood cell count decreased [Unknown]
  - Fatigue [Not Recovered/Not Resolved]
  - Weight decreased [Recovering/Resolving]
  - Abdominal discomfort [Unknown]
  - Anal haemorrhage [Unknown]
  - Drug dose omission [Unknown]
  - Intentional overdose [Unknown]
  - Eye swelling [Unknown]
  - Haemorrhage [Unknown]
  - Epistaxis [Unknown]
  - Chest pain [Unknown]
  - Depression [Unknown]
  - Eating disorder [Unknown]
  - Vomiting [Unknown]
  - Headache [Unknown]
  - Viral infection [Unknown]
  - Dizziness [Unknown]
  - Nausea [Unknown]
  - Diarrhoea [Unknown]
  - Influenza [Unknown]
  - Decreased appetite [Unknown]
  - Gastritis [Unknown]

NARRATIVE: CASE EVENT DATE: 20150528
